FAERS Safety Report 4499158-8 (Version None)
Quarter: 2004Q4

REPORT INFORMATION
  Report Type: 
  Country: None (occurrence: None)
  Receive Date: 20041109
  Receipt Date: 20041109
  Transmission Date: 20050328
  Serious: Yes (Other)
  Sender: FDA-Public Use
  Company Number: None

PATIENT
  Age: 77 Year
  Sex: Female
  Weight: 53.0709 kg

DRUGS (2)
  1. ISOSORBIDE [Suspect]
     Indication: CARDIOMYOPATHY
     Dosage: PO 30 MG QD
     Route: 048
  2. ISOSORBIDE [Suspect]
     Indication: CHEST PAIN
     Dosage: PO 30 MG QD
     Route: 048

REACTIONS (2)
  - CHEST PAIN [None]
  - PHARMACEUTICAL PRODUCT COMPLAINT [None]
